FAERS Safety Report 12392302 (Version 1)
Quarter: 2016Q2

REPORT INFORMATION
  Report Type: Spontaneous
  Country: US (occurrence: None)
  Receive Date: 20160520
  Receipt Date: 20160520
  Transmission Date: 20160815
  Serious: Yes (Death)
  Sender: FDA-Public Use
  Company Number: None

PATIENT
  Age: 77 Year
  Sex: Female

DRUGS (1)
  1. HUMIRA [Suspect]
     Active Substance: ADALIMUMAB
     Indication: CROHN^S DISEASE
     Dosage: 40MG Q14D SQ
     Route: 058
     Dates: start: 20151113, end: 20160324

REACTIONS (2)
  - Pneumonia [None]
  - Lung neoplasm malignant [None]

NARRATIVE: CASE EVENT DATE: 20160408
